FAERS Safety Report 10268351 (Version 1)
Quarter: 2014Q2

REPORT INFORMATION
  Report Type: Spontaneous
  Country: JP (occurrence: JP)
  Receive Date: 20140630
  Receipt Date: 20140630
  Transmission Date: 20141212
  Serious: Yes (Other)
  Sender: FDA-Public Use
  Company Number: JP-TEVA-490268ISR

PATIENT
  Age: 7 Decade
  Sex: Male

DRUGS (1)
  1. (TS)AMLODIPINE OD TABLET 2.5MG TAIYO,TAB,2.5MG [Suspect]
     Route: 048

REACTIONS (1)
  - Ascites [Unknown]
